FAERS Safety Report 8543111-1 (Version None)
Quarter: 2012Q3

REPORT INFORMATION
  Report Type: 
  Country: None (occurrence: None)
  Receive Date: 20120727
  Receipt Date: 20111116
  Transmission Date: 20120928
  Serious: No
  Sender: FDA-Public Use
  Company Number: US-MYLANLABS-2011S1023928

PATIENT
  Age: 38 Year
  Sex: Female
  Weight: 77.11 kg

DRUGS (4)
  1. LUNESTA [Suspect]
     Indication: INSOMNIA
     Route: 048
     Dates: start: 20111001
  2. CLONAZEPAM [Concomitant]
     Indication: ANXIETY
     Dosage: USING 1MG TABLET
  3. LEVOTHYROXINE SODIUM [Suspect]
     Indication: HYPOTHYROIDISM
     Route: 048
     Dates: start: 20111001
  4. CYMBALTA [Suspect]
     Indication: DEPRESSION
     Route: 048
     Dates: start: 20111001

REACTIONS (3)
  - BONE PAIN [None]
  - MYALGIA [None]
  - OEDEMA [None]
